FAERS Safety Report 6731860-7 (Version None)
Quarter: 2010Q2

REPORT INFORMATION
  Report Type: 
  Country: None (occurrence: None)
  Receive Date: 20100519
  Receipt Date: 20100519
  Transmission Date: 20101027
  Serious: Yes (Other)
  Sender: FDA-Public Use
  Company Number: None

PATIENT
  Age: 36 Year
  Sex: Female
  Weight: 52.1637 kg

DRUGS (1)
  1. TYLENOL ORAL SUSPENSION CHERRY 160MG/5ML MCNEIL PPC, INC [Suspect]
     Indication: HEADACHE
     Dosage: 15ML 1 PO
     Route: 048
     Dates: start: 20100115, end: 20100115

REACTIONS (3)
  - DIARRHOEA [None]
  - PRODUCT QUALITY ISSUE [None]
  - PRODUCT TASTE ABNORMAL [None]
